FAERS Safety Report 13731594 (Version 1)
Quarter: 2017Q3

REPORT INFORMATION
  Report Type: Spontaneous
  Country: JP (occurrence: JP)
  Receive Date: 20170707
  Receipt Date: 20170707
  Transmission Date: 20171127
  Serious: Yes (Death, Other)
  Sender: FDA-Public Use
  Company Number: JP-FRESENIUS KABI-FK201705848

PATIENT
  Age: 59 Year
  Sex: Female

DRUGS (5)
  1. CARBOPLATIN (MANUFACTURER UNKNOWN) [Suspect]
     Active Substance: CARBOPLATIN
     Indication: ENDOMETRIAL CANCER STAGE I
     Route: 065
     Dates: start: 200710
  2. DOCETAXEL (MANUFACTURER UNKNOWN) [Suspect]
     Active Substance: DOCETAXEL
     Indication: ENDOMETRIAL CANCER STAGE I
     Route: 065
     Dates: start: 200710
  3. CYTARABINE. [Concomitant]
     Active Substance: CYTARABINE
     Indication: PRODUCT USED FOR UNKNOWN INDICATION
  4. ACLARUBICIN [Concomitant]
     Active Substance: ACLARUBICIN
     Indication: PRODUCT USED FOR UNKNOWN INDICATION
  5. GRANULOCYTE COLONY-STIMULATING FACTOR (CAG) [Concomitant]
     Indication: PRODUCT USED FOR UNKNOWN INDICATION

REACTIONS (2)
  - Acute myeloid leukaemia [Fatal]
  - Myelodysplastic syndrome [Unknown]
